FAERS Safety Report 22345821 (Version 1)
Quarter: 2023Q2

REPORT INFORMATION
  Report Type: Spontaneous
  Country: CN (occurrence: None)
  Receive Date: 20230519
  Receipt Date: 20230519
  Transmission Date: 20230722
  Serious: Yes (Other)
  Sender: FDA-Public Use
  Company Number: 2023A110442

PATIENT
  Age: 69 Year
  Sex: Female

DRUGS (2)
  1. GEFITINIB [Suspect]
     Active Substance: GEFITINIB
     Indication: Lung adenocarcinoma stage IV
     Route: 048
     Dates: start: 20211110
  2. AUMOLERTINIB [Concomitant]
     Active Substance: AUMOLERTINIB

REACTIONS (2)
  - Malignant neoplasm progression [Recovering/Resolving]
  - Metastases to central nervous system [Recovering/Resolving]

NARRATIVE: CASE EVENT DATE: 20211208
